FAERS Safety Report 5752989-6 (Version None)
Quarter: 2008Q2

REPORT INFORMATION
  Report Type: 
  Country: None (occurrence: None)
  Receive Date: 20080527
  Receipt Date: 20080515
  Transmission Date: 20081010
  Serious: Yes (Hospitalization)
  Sender: FDA-Public Use
  Company Number: 2008035461

PATIENT
  Age: 51 Year
  Sex: Female

DRUGS (5)
  1. DALTEPARIN SODIUM [Suspect]
     Indication: EMBOLISM
     Dates: start: 20080405
  2. ATENOLOL [Concomitant]
  3. METOCLOPRAMIDE [Concomitant]
  4. SALBUTAMOL (SALBUTAMOL) [Concomitant]
  5. SERETIDE (FLUTICASONE PROPIONATE, SALMETEROL XINAFOATE) [Concomitant]

REACTIONS (7)
  - ASPARTATE AMINOTRANSFERASE INCREASED [None]
  - CEREBRAL INFARCTION [None]
  - DYSPHAGIA [None]
  - HAEMORRHAGIC STROKE [None]
  - HEADACHE [None]
  - RESTLESSNESS [None]
  - TREATMENT FAILURE [None]
